FAERS Safety Report 10312047 (Version 3)
Quarter: 2014Q3

REPORT INFORMATION
  Report Type: Report from Study
  Country: BR (occurrence: BR)
  Receive Date: 20140717
  Receipt Date: 20140823
  Transmission Date: 20150326
  Serious: Yes (Hospitalization, Other)
  Sender: FDA-Public Use
  Company Number: PHHY2014BR075464

PATIENT
  Age: 73 Year
  Sex: Male
  Weight: 93 kg

DRUGS (6)
  1. PRESSAT [Concomitant]
     Active Substance: AMLODIPINE BESYLATE
     Indication: HYPERTENSION
     Dosage: 2 DF (2 TABLETS), DAILY
     Route: 048
  2. TRILEPTAL [Suspect]
     Active Substance: OXCARBAZEPINE
     Dosage: 1 DF, DAILY (1 TABLET OF 600 MG DAILY)
     Route: 048
     Dates: start: 2007
  3. TRILEPTAL [Suspect]
     Active Substance: OXCARBAZEPINE
     Dosage: 2 DF, DAILY (2 TABLETS OF 300 MG DAILY)
     Route: 048
     Dates: start: 2007
  4. HYDROCHLOROTHIAZIDE. [Concomitant]
     Active Substance: HYDROCHLOROTHIAZIDE
     Indication: DIURETIC THERAPY
     Dosage: 0.5 DF (HALF TABLET), DAILY
     Route: 048
     Dates: start: 201312
  5. DIOVAN [Suspect]
     Active Substance: VALSARTAN
     Indication: HYPERTENSION
     Dosage: 2 DF (2 TABLETS), DAILY
     Route: 048
     Dates: end: 201405
  6. TRILEPTAL [Suspect]
     Active Substance: OXCARBAZEPINE
     Indication: EPILEPSY
     Dosage: 2 DF, DAILY (2 TABLETS OF 600 MG DAILY)
     Route: 048
     Dates: start: 2004

REACTIONS (9)
  - Thrombosis [Recovered/Resolved]
  - Pulmonary embolism [Recovered/Resolved]
  - Oxygen saturation decreased [Recovered/Resolved]
  - Pneumonia [Recovered/Resolved]
  - Fall [Recovered/Resolved]
  - Secretion discharge [Recovering/Resolving]
  - Blood pressure increased [Recovered/Resolved]
  - Bronchitis [Recovering/Resolving]
  - Cough [Recovering/Resolving]

NARRATIVE: CASE EVENT DATE: 201301
